FAERS Safety Report 6678067-X (Version None)
Quarter: 2010Q2

REPORT INFORMATION
  Report Type: 
  Country: None (occurrence: None)
  Receive Date: 20100412
  Receipt Date: 20100407
  Transmission Date: 20101027
  Serious: Yes (Death, Other)
  Sender: FDA-Public Use
  Company Number: PHHY2010US17503

PATIENT
  Sex: Female
  Weight: 54.422 kg

DRUGS (15)
  1. RECLAST [Suspect]
     Indication: OSTEOPOROSIS
     Dosage: 5MG/100ML ONCE YEARLY
     Dates: start: 20100301
  2. RITUXAN [Concomitant]
  3. NEXIUM [Concomitant]
  4. HERUPEX [Concomitant]
  5. METFORMIN HCL [Concomitant]
  6. FORADIL [Concomitant]
  7. ARAVA [Concomitant]
  8. PREDNISOLONE [Concomitant]
  9. LIDODERM [Concomitant]
  10. HYDROCHLOROTHIAZIDE [Concomitant]
  11. ALBUTEROL [Concomitant]
  12. EXFORGE [Concomitant]
  13. JANUVIA [Concomitant]
  14. TENEX [Concomitant]
  15. VICODIN ES [Concomitant]

REACTIONS (4)
  - BLOOD CREATININE INCREASED [None]
  - CREATININE RENAL CLEARANCE INCREASED [None]
  - DEATH [None]
  - RHEUMATOID ARTHRITIS [None]
